FAERS Safety Report 17818142 (Version 1)
Quarter: 2020Q2

REPORT INFORMATION
  Report Type: Spontaneous
  Country: CA (occurrence: CA)
  Receive Date: 20200522
  Receipt Date: 20200522
  Transmission Date: 20200714
  Serious: Yes (Life-Threatening, Hospitalization)
  Sender: FDA-Public Use
  Company Number: CA-PFIZER INC-2020201147

PATIENT
  Age: 67 Year
  Sex: Female
  Weight: 83.9 kg

DRUGS (1)
  1. LIPITOR [Suspect]
     Active Substance: ATORVASTATIN CALCIUM
     Indication: BLOOD CHOLESTEROL
     Dosage: UNK, 1X/DAY, 1 EVERY 1 DAYS
     Route: 048

REACTIONS (4)
  - Concussion [Recovered/Resolved]
  - Neurogenic shock [Recovered/Resolved]
  - Muscle spasms [Recovered/Resolved]
  - Rib fracture [Recovered/Resolved]
